FAERS Safety Report 4446565-5 (Version None)
Quarter: 2004Q3

REPORT INFORMATION
  Report Type: 
  Country: None (occurrence: None)
  Receive Date: 20040908
  Receipt Date: 20040827
  Transmission Date: 20050211
  Serious: Yes (Death, Other)
  Sender: FDA-Public Use
  Company Number: USA-2004-0016337

PATIENT
  Age: 52 Year
  Sex: Female
  Weight: 55.3 kg

DRUGS (3)
  1. OXYCONTIN [Suspect]
     Dosage: MG,
  2. DURAGESIC [Suspect]
     Dosage: 100 MCG/HR, TRANSDERMAL
     Route: 062
  3. ACETAMINOPHEN AND OXYCODONE HCL [Suspect]
     Dosage: 10 MG, Q6H,

REACTIONS (9)
  - ANXIETY [None]
  - AORTIC ATHEROSCLEROSIS [None]
  - CORONARY ARTERY ATHEROSCLEROSIS [None]
  - DEPRESSION [None]
  - DRUG DEPENDENCE [None]
  - DRUG TOXICITY [None]
  - DRUG WITHDRAWAL SYNDROME [None]
  - PAIN [None]
  - PULMONARY CONGESTION [None]
